FAERS Safety Report 5856484-5 (Version None)
Quarter: 2008Q3

REPORT INFORMATION
  Report Type: 
  Country: None (occurrence: None)
  Receive Date: 20080825
  Receipt Date: 20080529
  Transmission Date: 20090109
  Serious: No
  Sender: FDA-Public Use
  Company Number: A0730211A

PATIENT
  Sex: Female

DRUGS (2)
  1. VERAMYST [Suspect]
     Dosage: 2SPR PER DAY
     Route: 045
  2. NO CONCURRENT MEDICATION [Concomitant]

REACTIONS (3)
  - ADVERSE EVENT [None]
  - INSOMNIA [None]
  - PARAESTHESIA [None]
